FAERS Safety Report 9669466 (Version 3)
Quarter: 2013Q4

REPORT INFORMATION
  Report Type: Spontaneous
  Country: CH (occurrence: CH)
  Receive Date: 20131105
  Receipt Date: 20131118
  Transmission Date: 20140711
  Serious: Yes (Hospitalization, Other)
  Sender: FDA-Public Use
  Company Number: CH-PFIZER INC-2013311330

PATIENT
  Age: 77 Year
  Sex: Male
  Weight: 63 kg

DRUGS (12)
  1. ALDACTONE [Suspect]
     Indication: MYOCARDIAL ISCHAEMIA
     Dosage: 25 MG, 1X/DAY
     Route: 048
     Dates: end: 20130906
  2. METOPROLOL TARTRATE [Suspect]
     Indication: MYOCARDIAL ISCHAEMIA
     Dosage: 50 MG, 1X/DAY
     Route: 048
     Dates: end: 20130906
  3. DIGOXIN [Interacting]
     Indication: MYOCARDIAL ISCHAEMIA
     Dosage: 0.125 MG, 1X/DAY
     Route: 048
     Dates: end: 20130906
  4. AMIODARONE [Interacting]
     Indication: MYOCARDIAL ISCHAEMIA
     Dosage: 200 MG, 1X/DAY
     Route: 048
     Dates: start: 20130706
  5. COVERSUM [Interacting]
     Indication: MYOCARDIAL ISCHAEMIA
     Dosage: 2.5 MG, 1X/DAY
     Route: 048
  6. TOREM [Suspect]
     Indication: MYOCARDIAL ISCHAEMIA
     Dosage: 5 MG, 1X/DAY
     Route: 048
  7. DORMICUM TABLET ^ROCHE^ [Suspect]
     Indication: INSOMNIA
     Dosage: 7.5 MG, 1X/DAY
     Route: 048
  8. ASPIRIN CARDIO [Concomitant]
     Indication: MYOCARDIAL ISCHAEMIA
     Dosage: 100 MG, 1X/DAY
     Route: 048
  9. ATORVASTATIN [Concomitant]
     Indication: MYOCARDIAL ISCHAEMIA
     Dosage: 20 MG, 1X/DAY
     Route: 048
  10. ESOMEPRAZOLE [Concomitant]
     Indication: PROPHYLAXIS
     Dosage: 20 MG, 1X/DAY
     Route: 048
  11. SPIRIVA [Concomitant]
     Indication: CHRONIC OBSTRUCTIVE PULMONARY DISEASE
     Dosage: 18 UG, 1X/DAY
     Route: 055
  12. SEREVENT [Concomitant]
     Indication: CHRONIC OBSTRUCTIVE PULMONARY DISEASE
     Dosage: 1 DF, 2X/DAY
     Route: 055

REACTIONS (9)
  - Drug interaction [Unknown]
  - Accidental overdose [Recovered/Resolved]
  - Renal failure acute [Recovered/Resolved]
  - Hyperkalaemia [Recovered/Resolved]
  - Dehydration [Recovered/Resolved]
  - Hypotension [Recovered/Resolved]
  - Orthostatic hypotension [Recovered/Resolved]
  - Nausea [Recovered/Resolved]
  - Fall [Recovered/Resolved]
